FAERS Safety Report 5642585-3 (Version None)
Quarter: 2008Q1

REPORT INFORMATION
  Report Type: 
  Country: None (occurrence: None)
  Receive Date: 20080227
  Receipt Date: 20080227
  Transmission Date: 20080703
  Serious: Yes (Hospitalization)
  Sender: FDA-Public Use
  Company Number: None

PATIENT
  Sex: Female
  Weight: 75.7507 kg

DRUGS (8)
  1. COREG [Suspect]
     Indication: HYPERTENSION
     Dosage: 12.5MG  PO BID  (THERAPY DATES: PRIOR TO ADMISSION)
     Route: 048
  2. FLAGYL [Concomitant]
  3. CIPRO [Concomitant]
  4. SYNTHROID [Concomitant]
  5. MECLIZINE [Concomitant]
  6. FELODIPINE [Concomitant]
  7. IRON [Concomitant]
  8. BACID [Concomitant]

REACTIONS (4)
  - DIZZINESS [None]
  - LOSS OF CONSCIOUSNESS [None]
  - SINUS BRADYCARDIA [None]
  - SYNCOPE [None]
